FAERS Safety Report 8501528-5 (Version None)
Quarter: 2012Q3

REPORT INFORMATION
  Report Type: 
  Country: None (occurrence: None)
  Receive Date: 20120710
  Receipt Date: 20120705
  Transmission Date: 20120928
  Serious: Yes (Other)
  Sender: FDA-Public Use
  Company Number: BR-PFIZER INC-2012161398

PATIENT
  Sex: Female
  Weight: 62 kg

DRUGS (2)
  1. LYRICA [Suspect]
     Indication: INTERVERTEBRAL DISC DEGENERATION
     Dosage: 75 MG, 1X/DAY (ONE CAPSULE DAILY)
     Route: 048
     Dates: start: 20120703
  2. LEVOTHYROXINE SODIUM [Concomitant]
     Indication: THYROID DISORDER
     Dosage: UNK

REACTIONS (2)
  - VOMITING [None]
  - DIZZINESS POSTURAL [None]
